FAERS Safety Report 5372542-6 (Version None)
Quarter: 2007Q2

REPORT INFORMATION
  Report Type: 
  Country: None (occurrence: None)
  Receive Date: 20070627
  Receipt Date: 20070620
  Transmission Date: 20071010
  Serious: Yes (Hospitalization)
  Sender: FDA-Public Use
  Company Number: FR-ABBOTT-07P-056-0368141-00

PATIENT
  Age: 64 Year
  Sex: Female

DRUGS (3)
  1. ZECLAR [Suspect]
     Indication: TONSILLITIS
     Route: 048
     Dates: start: 20060226, end: 20060302
  2. OFLOXACIN [Suspect]
     Indication: TONSILLITIS
     Route: 048
     Dates: start: 20060303, end: 20060307
  3. TELITHROMYCINE [Suspect]
     Indication: TONSILLITIS
     Route: 048
     Dates: start: 20060308, end: 20060310

REACTIONS (1)
  - CUTANEOUS VASCULITIS [None]
